FAERS Safety Report 11589211 (Version 3)
Quarter: 2015Q4

REPORT INFORMATION
  Report Type: Spontaneous
  Country: US (occurrence: US)
  Receive Date: 20151002
  Receipt Date: 20151110
  Transmission Date: 20160304
  Serious: No
  Sender: FDA-Public Use
  Company Number: US-LUNDBECK-DKLU2004065

PATIENT
  Sex: Male

DRUGS (1)
  1. NORTHERA [Suspect]
     Active Substance: DROXIDOPA
     Indication: HYPOTENSION
     Route: 065
     Dates: start: 20150727

REACTIONS (9)
  - Confusional state [Recovering/Resolving]
  - Somnolence [Unknown]
  - Blood pressure decreased [Unknown]
  - Musculoskeletal stiffness [Unknown]
  - Fall [Unknown]
  - Lethargy [Unknown]
  - Freezing phenomenon [Unknown]
  - Fatigue [Recovering/Resolving]
  - Gait disturbance [Unknown]
